FAERS Safety Report 13772249 (Version 3)
Quarter: 2019Q2

REPORT INFORMATION
  Report Type: Spontaneous
  Country: US (occurrence: US)
  Receive Date: 20170720
  Receipt Date: 20190408
  Transmission Date: 20190711
  Serious: Yes (Other)
  Sender: FDA-Public Use
  Company Number: US-PFIZER INC-2017311780

PATIENT
  Age: 82 Year
  Sex: Female

DRUGS (1)
  1. METHOTREXATE SODIUM. [Suspect]
     Active Substance: METHOTREXATE SODIUM
     Indication: PSORIASIS
     Dosage: 15 MG, WEEKLY (FOR APPROXIMATELY FIVE YEARS)

REACTIONS (3)
  - Epstein-Barr virus infection [Recovered/Resolved with Sequelae]
  - Lymphoproliferative disorder [Recovered/Resolved with Sequelae]
  - B-cell lymphoma [Recovered/Resolved with Sequelae]
